FAERS Safety Report 5015948-7 (Version None)
Quarter: 2006Q2

REPORT INFORMATION
  Report Type: 
  Country: None (occurrence: None)
  Receive Date: 20060426
  Receipt Date: 20051227
  Transmission Date: 20061013
  Serious: Yes (Hospitalization)
  Sender: FDA-Public Use
  Company Number: US162889

PATIENT
  Age: 71 Year
  Sex: Male

DRUGS (3)
  1. SENSIPAR [Suspect]
     Indication: HYPERPARATHYROIDISM SECONDARY
     Dosage: 60 MG, 1 IN 1 DAYS
     Dates: start: 20050511
  2. PARICALCITOL [Concomitant]
  3. LANTHANUM CARBONATE [Concomitant]

REACTIONS (1)
  - HYPOCALCAEMIA [None]
